FAERS Safety Report 16239592 (Version 1)
Quarter: 2019Q2

REPORT INFORMATION
  Report Type: Spontaneous
  Country: US (occurrence: US)
  Receive Date: 20190425
  Receipt Date: 20190425
  Transmission Date: 20190711
  Serious: No
  Sender: FDA-Public Use
  Company Number: US-AMNEAL PHARMACEUTICALS-2019AMN00084

PATIENT
  Sex: Male

DRUGS (2)
  1. ISOTRETINOIN. [Suspect]
     Active Substance: ISOTRETINOIN
     Dosage: UNK
     Route: 065
  2. ISOTRETINOIN. [Suspect]
     Active Substance: ISOTRETINOIN
     Indication: PRODUCT USED FOR UNKNOWN INDICATION
     Dosage: UNK
     Route: 065

REACTIONS (2)
  - Blood cholesterol increased [Unknown]
  - Blood triglycerides increased [Unknown]
